FAERS Safety Report 4571446-6 (Version None)
Quarter: 2005Q1

REPORT INFORMATION
  Report Type: 
  Country: None (occurrence: None)
  Receive Date: 20050207
  Receipt Date: 20050124
  Transmission Date: 20050727
  Serious: Yes (Hospitalization, Other)
  Sender: FDA-Public Use
  Company Number: US-JNJFOC-20041002491

PATIENT
  Sex: Female
  Weight: 92.08 kg

DRUGS (14)
  1. REMICADE [Suspect]
     Route: 042
  2. REMICADE [Suspect]
     Indication: CROHN'S DISEASE
     Route: 042
  3. CIPRO [Concomitant]
  4. KLOR-CON [Concomitant]
  5. PROZAC [Concomitant]
  6. PHENERGAN [Concomitant]
     Dosage: AS NECESSARY
  7. DEMEROL [Concomitant]
  8. MORPHINE [Concomitant]
  9. IBUPROFEN [Concomitant]
  10. FLEXERIL [Concomitant]
  11. OXYCOTIN [Concomitant]
  12. PREDNISONE [Concomitant]
  13. AMBIEN [Concomitant]
     Dosage: AT BEDTIME
  14. DILAUDID [Concomitant]

REACTIONS (16)
  - ADVERSE DRUG REACTION [None]
  - AMNESIA [None]
  - CANDIDIASIS [None]
  - CONFUSIONAL STATE [None]
  - CROHN'S DISEASE [None]
  - DYSPHAGIA [None]
  - FLUID RETENTION [None]
  - HEADACHE [None]
  - MOVEMENT DISORDER [None]
  - NASAL SEPTUM DEVIATION [None]
  - NAUSEA [None]
  - PAIN [None]
  - SINUSITIS [None]
  - SKIN STRIAE [None]
  - TREMOR [None]
  - VISUAL DISTURBANCE [None]
